FAERS Safety Report 4449733-1 (Version None)
Quarter: 2004Q3

REPORT INFORMATION
  Report Type: 
  Country: None (occurrence: None)
  Receive Date: 20040913
  Receipt Date: 20040831
  Transmission Date: 20050211
  Serious: Yes (Hospitalization)
  Sender: FDA-Public Use
  Company Number: 2004_000069

PATIENT
  Age: 48 Year
  Sex: Female
  Weight: 71.2147 kg

DRUGS (3)
  1. DEPOCYT [Suspect]
     Indication: CSF TEST ABNORMAL
     Dosage: 50 MG; X1; INTRATHECAL
     Route: 037
     Dates: start: 20040823, end: 20040823
  2. OXALIPLATIN [Concomitant]
  3. GEMCITABINE [Concomitant]

REACTIONS (5)
  - ARACHNOIDITIS [None]
  - COMPUTERISED TOMOGRAM ABNORMAL [None]
  - CONFUSIONAL STATE [None]
  - NUCLEAR MAGNETIC RESONANCE IMAGING BRAIN ABNORMAL [None]
  - WHITE BLOOD CELL COUNT INCREASED [None]
